FAERS Safety Report 7299131-0 (Version None)
Quarter: 2011Q1

REPORT INFORMATION
  Report Type: 
  Country: None (occurrence: None)
  Receive Date: 20110217
  Receipt Date: 20110217
  Transmission Date: 20110831
  Serious: Yes (Hospitalization)
  Sender: FDA-Public Use
  Company Number: DE-BRISTOL-MYERS SQUIBB COMPANY-15386428

PATIENT
  Age: 59 Year
  Sex: Male

DRUGS (1)
  1. HYDROXYCARBAMIDE [Suspect]
     Indication: CHRONIC MYELOID LEUKAEMIA

REACTIONS (2)
  - ACUTE MYOCARDIAL INFARCTION [None]
  - PLATELET COUNT DECREASED [None]
